FAERS Safety Report 4443192-0 (Version None)
Quarter: 2004Q3

REPORT INFORMATION
  Report Type: 
  Country: None (occurrence: None)
  Receive Date: 20040903
  Receipt Date: 20040701
  Transmission Date: 20050211
  Serious: Yes (Other)
  Sender: FDA-Public Use
  Company Number: 2004UW13647

PATIENT

DRUGS (1)
  1. CRESTOR [Suspect]

REACTIONS (1)
  - WEIGHT LOSS POOR [None]
